FAERS Safety Report 8280658-X (Version None)
Quarter: 2012Q2

REPORT INFORMATION
  Report Type: 
  Country: None (occurrence: None)
  Receive Date: 20120412
  Receipt Date: 20120127
  Transmission Date: 20120825
  Serious: Yes (Other)
  Sender: FDA-Public Use
  Company Number: US-ASTRAZENECA-2011SE18938

PATIENT
  Age: 53 Year
  Sex: Female
  Weight: 54.4 kg

DRUGS (27)
  1. SEROQUEL [Suspect]
     Indication: BIPOLAR DISORDER
     Route: 048
     Dates: start: 20010101, end: 20110128
  2. BUPROPION HCL [Concomitant]
  3. POLYETHELENE GLYCOL [Concomitant]
  4. APAP TAB [Concomitant]
  5. ROPINIROLE [Concomitant]
  6. BUSPERONE [Concomitant]
     Indication: BIPOLAR DISORDER
  7. FEXOFENADINE [Concomitant]
     Indication: HYPERSENSITIVITY
     Dosage: 64/120 DAILY
  8. LAMOTRGINE [Concomitant]
     Indication: BIPOLAR DISORDER
  9. NEXIUM [Suspect]
     Route: 048
  10. CLONAZEPAM [Concomitant]
     Indication: BIPOLAR DISORDER
  11. ALBUTEROL SULFATE AUTOHALER [Concomitant]
     Indication: CHRONIC OBSTRUCTIVE PULMONARY DISEASE
  12. LAMICTAL [Concomitant]
  13. METAXALONE [Concomitant]
     Indication: ARTHRITIS
  14. RISPERIDONE [Concomitant]
     Indication: BIPOLAR DISORDER
  15. SPIRIVA [Concomitant]
     Indication: CHRONIC OBSTRUCTIVE PULMONARY DISEASE
  16. NEXIUM [Suspect]
     Route: 048
  17. SEROQUEL [Suspect]
     Route: 048
     Dates: start: 20110405
  18. SEROQUEL [Suspect]
     Route: 048
     Dates: start: 20110405
  19. HYDROCODONE [Concomitant]
     Indication: ARTHRITIS
     Dosage: 10/500 MG DAILY
  20. LAPINEAL [Concomitant]
     Indication: ARTHRITIS
  21. NEXIUM [Suspect]
     Indication: GASTROOESOPHAGEAL REFLUX DISEASE
     Route: 048
  22. NEXIUM [Suspect]
     Route: 048
     Dates: start: 19980101
  23. NEXIUM [Suspect]
     Route: 048
  24. PREDNISONE TAB [Concomitant]
     Indication: ARTHRITIS
  25. PREDNISONE TAB [Concomitant]
     Indication: RHEUMATOID ARTHRITIS
  26. NEXIUM [Suspect]
     Route: 048
     Dates: start: 19980101
  27. ESTRADIOL [Concomitant]

REACTIONS (17)
  - HEAD INJURY [None]
  - STRESS [None]
  - PULMONARY FUNCTION TEST ABNORMAL [None]
  - INSOMNIA [None]
  - VOMITING [None]
  - THROAT IRRITATION [None]
  - DEHYDRATION [None]
  - MEMORY IMPAIRMENT [None]
  - FALL [None]
  - DYSPHAGIA [None]
  - INCORRECT DOSE ADMINISTERED [None]
  - WEIGHT DECREASED [None]
  - COUGH [None]
  - CONCUSSION [None]
  - RHEUMATOID ARTHRITIS [None]
  - GASTROOESOPHAGEAL REFLUX DISEASE [None]
  - DRUG DOSE OMISSION [None]
